FAERS Safety Report 9868060 (Version 3)
Quarter: 2014Q4

REPORT INFORMATION
  Report Type: Spontaneous
  Country: US (occurrence: US)
  Receive Date: 20140204
  Receipt Date: 20141003
  Transmission Date: 20150529
  Serious: Yes (Hospitalization, Other)
  Sender: FDA-Public Use
  Company Number: US-009507513-1402USA000684

PATIENT
  Sex: Female

DRUGS (1)
  1. NUVARING [Suspect]
     Active Substance: ETHINYL ESTRADIOL\ETONOGESTREL
     Dosage: UNK
     Route: 067

REACTIONS (12)
  - Angioplasty [Unknown]
  - Dyslipidaemia [Unknown]
  - Hypotension [Unknown]
  - Diarrhoea [Unknown]
  - Thrombosis [Unknown]
  - Subclavian artery embolism [Unknown]
  - Hypothyroidism [Unknown]
  - Subclavian artery thrombosis [Unknown]
  - Cerebrovascular accident [Unknown]
  - Leukocytosis [Recovered/Resolved]
  - Hypertension [Unknown]
  - Nausea [Unknown]

NARRATIVE: CASE EVENT DATE: 2009
